FAERS Safety Report 7216086-5 (Version None)
Quarter: 2011Q1

REPORT INFORMATION
  Report Type: 
  Country: None (occurrence: None)
  Receive Date: 20110107
  Receipt Date: 20110104
  Transmission Date: 20110831
  Serious: Yes (Life-Threatening, Hospitalization)
  Sender: FDA-Public Use
  Company Number: FR-ASTRAZENECA-2011SE00517

PATIENT
  Age: 44 Year
  Sex: Female

DRUGS (6)
  1. BIPROFENID [Concomitant]
  2. CEFAZOLINE PANPHARMA [Suspect]
     Indication: PROPHYLAXIS
     Dates: start: 20101117, end: 20101117
  3. OMEPRAZOLE [Concomitant]
  4. DIPRIVAN [Suspect]
     Indication: ANAESTHESIA
     Route: 042
     Dates: start: 20101117, end: 20101117
  5. LAMALINE [Concomitant]
  6. SUCCINYLCHOLINE CHLORIDE [Suspect]
     Indication: ANAESTHESIA
     Dates: start: 20101117, end: 20101117

REACTIONS (1)
  - ANAPHYLACTIC SHOCK [None]
